FAERS Safety Report 4909953-6 (Version None)
Quarter: 2006Q1

REPORT INFORMATION
  Report Type: 
  Country: None (occurrence: None)
  Receive Date: 20060208
  Receipt Date: 20051230
  Transmission Date: 20060701
  Serious: Yes (Hospitalization)
  Sender: FDA-Public Use
  Company Number: 2006014532

PATIENT
  Age: 38 Year
  Sex: Female

DRUGS (9)
  1. AZITHROMYCIN [Suspect]
     Indication: PHARYNGITIS
     Dosage: DF, ORAL
     Route: 048
     Dates: start: 20051102, end: 20051104
  2. SULFASALAZINE [Suspect]
     Indication: ILL-DEFINED DISORDER
     Dosage: 500 + 1000MG (1 IN 1 D), ORAL
     Route: 048
     Dates: start: 20051010, end: 20051016
  3. SULFASALAZINE [Suspect]
     Indication: ILL-DEFINED DISORDER
     Dosage: 500 + 1000MG (1 IN 1 D), ORAL
     Route: 048
     Dates: start: 20051017, end: 20051023
  4. SULFASALAZINE [Suspect]
     Indication: ILL-DEFINED DISORDER
     Dosage: 500 + 1000MG (1 IN 1 D), ORAL
     Route: 048
     Dates: start: 20051024, end: 20051030
  5. SULFASALAZINE [Suspect]
     Indication: ILL-DEFINED DISORDER
     Dosage: 500 + 1000MG (1 IN 1 D), ORAL
     Route: 048
     Dates: start: 20051031, end: 20051105
  6. PANTOPRAZOLE SODIUM [Suspect]
     Indication: ILL-DEFINED DISORDER
     Dosage: 20 MG (1 IN 1 D), ORAL
     Route: 048
     Dates: start: 20051010, end: 20051108
  7. DICLOFENAC SODIUM [Suspect]
     Indication: ILL-DEFINED DISORDER
     Dosage: 50 + 100MG (1 IN 1 D), ORAL
     Route: 048
     Dates: start: 20050501, end: 20051105
  8. DICLOFENAC SODIUM [Suspect]
     Indication: ILL-DEFINED DISORDER
     Dosage: 50 + 100MG (1 IN 1 D), ORAL
     Route: 048
     Dates: start: 20050501, end: 20051105
  9. COLCHIMAX (COLCHICINE, DICYCLOVERINE HYDROCHLORIDE) [Suspect]
     Indication: ILL-DEFINED DISORDER
     Dosage: 1 DF (1 IN 1 D), ORAL
     Route: 048
     Dates: start: 20051010, end: 20051105

REACTIONS (4)
  - APHTHOUS STOMATITIS [None]
  - DERMATITIS BULLOUS [None]
  - GENITAL ULCERATION [None]
  - PYREXIA [None]
